FAERS Safety Report 16315559 (Version 3)
Quarter: 2019Q3

REPORT INFORMATION
  Report Type: Report from Study
  Country: US (occurrence: US)
  Receive Date: 20190515
  Receipt Date: 20190801
  Transmission Date: 20191004
  Serious: No
  Sender: FDA-Public Use
  Company Number: US-SA-2019SA125474

PATIENT
  Age: 51 Year
  Sex: Male
  Weight: 78.01 kg

DRUGS (7)
  1. DUPILUMAB [Suspect]
     Active Substance: DUPILUMAB
     Dosage: 300 MG; EVERY 15 DAYS
     Route: 058
     Dates: start: 2019
  2. CEFADROXIL. [Concomitant]
     Active Substance: CEFADROXIL
  3. DUPILUMAB [Suspect]
     Active Substance: DUPILUMAB
     Indication: DERMATITIS ATOPIC
     Dosage: 600 MG, 1X
     Route: 058
     Dates: start: 20190401, end: 20190401
  4. HYDROCHLOROTHIAZIDE. [Concomitant]
     Active Substance: HYDROCHLOROTHIAZIDE
  5. ZYRTEC [Concomitant]
     Active Substance: CETIRIZINE HYDROCHLORIDE
  6. LISINOPRIL AND HYDROCHLOROTHIAZIDE [Concomitant]
     Active Substance: HYDROCHLOROTHIAZIDE\LISINOPRIL
  7. TRIAMCINOLONE ACETONIDE. [Concomitant]
     Active Substance: TRIAMCINOLONE ACETONIDE

REACTIONS (5)
  - Eyelids pruritus [Recovering/Resolving]
  - Ocular hyperaemia [Recovered/Resolved]
  - Blepharitis [Unknown]
  - Product use issue [Not Recovered/Not Resolved]
  - Erythema of eyelid [Unknown]
